FAERS Safety Report 19876963 (Version 1)
Quarter: 2021Q3

REPORT INFORMATION
  Report Type: Report from Study
  Country: CA (occurrence: CA)
  Receive Date: 20210924
  Receipt Date: 20210924
  Transmission Date: 20211014
  Serious: Yes (Hospitalization)
  Sender: FDA-Public Use
  Company Number: CA-IPSEN BIOPHARMACEUTICALS, INC.-2021-22910

PATIENT
  Age: 75 Year
  Sex: Male

DRUGS (17)
  1. VALSARTAN. [Concomitant]
     Active Substance: VALSARTAN
  2. MAR?ALLOPURINOL [Concomitant]
  3. ATORVASTATIN [Concomitant]
     Active Substance: ATORVASTATIN
  4. ELIQUIS [Concomitant]
     Active Substance: APIXABAN
  5. JARDIANCE [Concomitant]
     Active Substance: EMPAGLIFLOZIN
  6. AMIODARONE [Concomitant]
     Active Substance: AMIODARONE
  7. SOMATULINE AUTOGEL [Suspect]
     Active Substance: LANREOTIDE ACETATE
     Indication: NEUROENDOCRINE TUMOUR
     Route: 058
     Dates: start: 20210529
  8. VITAMIN B12 [Concomitant]
     Active Substance: CYANOCOBALAMIN
  9. CARVEDILOL. [Concomitant]
     Active Substance: CARVEDILOL
  10. NOVOGESIC [Concomitant]
  11. ALDACTONE [Concomitant]
     Active Substance: SPIRONOLACTONE
  12. PREGABALIN. [Concomitant]
     Active Substance: PREGABALIN
  13. PMS SULFATE [Concomitant]
  14. FUROSEMIDE. [Concomitant]
     Active Substance: FUROSEMIDE
  15. MINT?GLICLAZIDE [Concomitant]
  16. PANTOPRAZOLE [Concomitant]
     Active Substance: PANTOPRAZOLE
  17. CLOPIDOGREL [Concomitant]
     Active Substance: CLOPIDOGREL BISULFATE

REACTIONS (2)
  - Diarrhoea [Unknown]
  - Pyrexia [Unknown]

NARRATIVE: CASE EVENT DATE: 20210918
